FAERS Safety Report 4707112-3 (Version None)
Quarter: 2005Q3

REPORT INFORMATION
  Report Type: 
  Country: None (occurrence: None)
  Receive Date: 20050706
  Receipt Date: 20041102
  Transmission Date: 20060218
  Serious: Yes (Hospitalization)
  Sender: FDA-Public Use
  Company Number: AU-ROCHE-384921

PATIENT
  Age: 59 Year
  Sex: Male
  Weight: 67 kg

DRUGS (11)
  1. INTERFERON ALFA-2A [Suspect]
     Indication: METASTATIC RENAL CELL CARCINOMA
     Route: 058
     Dates: start: 20041012
  2. BLINDED BEVACIZUMAB [Suspect]
     Indication: METASTATIC RENAL CELL CARCINOMA
     Route: 042
     Dates: start: 20040824, end: 20041005
  3. BLINDED BEVACIZUMAB [Suspect]
     Dosage: DOSE REDUCED.
     Route: 042
     Dates: start: 20041115
  4. ACETAMINOPHEN [Concomitant]
     Dates: start: 20040615
  5. METOCLOPRAMIDE [Concomitant]
     Dates: start: 20040824
  6. GLYCLAZIDE [Concomitant]
     Dates: start: 19950615
  7. METFORMIN [Concomitant]
     Dates: start: 20030315
  8. TENORMIN [Concomitant]
     Dates: start: 19950615
  9. TRITACE [Concomitant]
     Dates: start: 19950615
  10. ATORVASTATIN CALCIUM [Concomitant]
     Dates: start: 20010615
  11. ZOLEDRONATE [Concomitant]
     Dates: start: 20040604

REACTIONS (5)
  - ANOREXIA [None]
  - DEHYDRATION [None]
  - DIARRHOEA [None]
  - ORAL INTAKE REDUCED [None]
  - RENAL FAILURE ACUTE [None]
